FAERS Safety Report 9103331 (Version 1)
Quarter: 2013Q1

REPORT INFORMATION
  Report Type: Spontaneous
  Country: LB (occurrence: LB)
  Receive Date: 20130218
  Receipt Date: 20130218
  Transmission Date: 20140127
  Serious: Yes (Death, Other)
  Sender: FDA-Public Use
  Company Number: LB-ASTRAZENECA-2013SE10570

PATIENT
  Age: 48 Year
  Sex: Female

DRUGS (3)
  1. BRILINTA [Suspect]
     Indication: ACUTE MYOCARDIAL INFARCTION
     Route: 048
  2. BRILINTA [Suspect]
     Indication: ACUTE MYOCARDIAL INFARCTION
     Route: 048
  3. PLAVIX [Concomitant]

REACTIONS (3)
  - Loss of consciousness [Fatal]
  - Muscle spasms [Unknown]
  - Cerebrovascular accident [Fatal]
